FAERS Safety Report 4343430-9 (Version None)
Quarter: 2004Q2

REPORT INFORMATION
  Report Type: 
  Country: None (occurrence: None)
  Receive Date: 20040419
  Receipt Date: 20040409
  Transmission Date: 20050107
  Serious: No
  Sender: FDA-Public Use
  Company Number: 2004UW07234

PATIENT
  Age: 21 Year
  Sex: Female
  Weight: 79.3795 kg

DRUGS (13)
  1. SEROQUEL [Suspect]
     Indication: PSYCHOTIC DISORDER
     Dosage: 50 MG TID PO
     Route: 048
     Dates: start: 20040301
  2. ATIVAN [Concomitant]
  3. MUCOMYST [Concomitant]
  4. REGLAN [Concomitant]
  5. ALBUTEROL [Concomitant]
  6. ATROVENT [Concomitant]
  7. PREVACID [Concomitant]
  8. MEDROL [Concomitant]
  9. ACTIGALL [Concomitant]
  10. FENTANYL [Concomitant]
  11. LASIX /SWE/ [Concomitant]
  12. LEVAQUIN [Concomitant]
  13. ALBUMIN (HUMAN) [Concomitant]

REACTIONS (1)
  - LEUKOPENIA [None]
